FAERS Safety Report 8794402 (Version 2)
Quarter: 2012Q4

REPORT INFORMATION
  Report Type: 
  Country: US (occurrence: US)
  Receive Date: 20120917
  Receipt Date: 20121003
  Transmission Date: 20130627
  Serious: Yes (Disabling)
  Sender: FDA-Public Use
  Company Number: PHEH2012US007732

PATIENT
  Age: 52 Year
  Sex: Female
  Weight: 58.96 kg

DRUGS (10)
  1. EXTAVIA [Suspect]
     Indication: MULTIPLE SCLEROSIS
     Dosage: 0.25 mg, QOD
     Route: 058
     Dates: start: 201004
  2. EXTAVIA [Suspect]
     Dosage: UNK UKN, UNK
  3. PROPANOLOL [Concomitant]
     Dosage: UNK UKN, daily
     Route: 048
  4. AMLODIPINE [Concomitant]
     Dosage: 10 mg, QD
     Route: 048
  5. BACLOFEN [Concomitant]
     Indication: MULTIPLE SCLEROSIS
     Dosage: 10 mg, QD
     Route: 048
  6. CITALOPRAM [Concomitant]
     Indication: MULTIPLE SCLEROSIS
     Dosage: 40 mg, QD
     Route: 048
  7. CYCLOBENZAPRINE [Concomitant]
     Indication: MULTIPLE SCLEROSIS
     Dosage: 10 mg, TID
     Route: 048
  8. GABAPENTIN [Concomitant]
     Indication: MULTIPLE SCLEROSIS
     Dosage: UNK UKN, UNK
     Route: 048
  9. HYDROCODONE [Concomitant]
     Dosage: UNK UKN, UNK
  10. FERROUS SULFATE [Concomitant]
     Dosage: UNK UKN, UNK

REACTIONS (11)
  - Ligament injury [Not Recovered/Not Resolved]
  - Pain [Not Recovered/Not Resolved]
  - Hypokinesia [Not Recovered/Not Resolved]
  - Limb injury [Unknown]
  - Skin injury [Unknown]
  - Contusion [Unknown]
  - Muscle strain [Unknown]
  - Tendon injury [Not Recovered/Not Resolved]
  - Swelling [Not Recovered/Not Resolved]
  - Balance disorder [Unknown]
  - Fall [Unknown]
